FAERS Safety Report 24841104 (Version 2)
Quarter: 2025Q1

REPORT INFORMATION
  Report Type: Spontaneous
  Country: CH (occurrence: CH)
  Receive Date: 20250114
  Receipt Date: 20250303
  Transmission Date: 20250409
  Serious: Yes (Other)
  Sender: ALEXION PHARMACEUTICALS
  Company Number: CH-ASTRAZENECA-202501CHE009723CH

PATIENT

DRUGS (8)
  1. FASLODEX [Suspect]
     Active Substance: FULVESTRANT
     Indication: Invasive breast carcinoma
     Route: 065
  2. FASLODEX [Suspect]
     Active Substance: FULVESTRANT
  3. GOSERELIN [Suspect]
     Active Substance: GOSERELIN
     Indication: Invasive breast carcinoma
     Route: 065
  4. XELODA [Concomitant]
     Active Substance: CAPECITABINE
  5. ENHERTU [Concomitant]
     Active Substance: FAM-TRASTUZUMAB DERUXTECAN-NXKI
  6. EPIRUBICIN [Concomitant]
     Active Substance: EPIRUBICIN
  7. EXEMESTANE [Concomitant]
     Active Substance: EXEMESTANE
  8. XGEVA [Concomitant]
     Active Substance: DENOSUMAB

REACTIONS (2)
  - Cerebrovascular accident [Recovered/Resolved]
  - Malignant neoplasm progression [Unknown]
